FAERS Safety Report 7388378-0 (Version None)
Quarter: 2011Q2

REPORT INFORMATION
  Report Type: 
  Country: None (occurrence: None)
  Receive Date: 20110401
  Receipt Date: 20110321
  Transmission Date: 20111010
  Serious: Yes (Other)
  Sender: FDA-Public Use
  Company Number: PHHY2011BR24057

PATIENT
  Sex: Male

DRUGS (3)
  1. LAMICTAL [Concomitant]
     Indication: CONVULSION
     Dosage: 300 MG, DAILY
  2. GARDENAL [Concomitant]
     Indication: CONVULSION
     Dosage: 100 MG, DAILY
  3. TEGRETOL-XR [Suspect]
     Indication: CONVULSION
     Dosage: 400 MG, UNK
     Route: 048

REACTIONS (3)
  - HEPATIC NEOPLASM [None]
  - HEPATIC NECROSIS [None]
  - NODULAR REGENERATIVE HYPERPLASIA [None]
